FAERS Safety Report 5427271-7 (Version None)
Quarter: 2007Q3

REPORT INFORMATION
  Report Type: 
  Country: None (occurrence: None)
  Receive Date: 20070828
  Receipt Date: 20070817
  Transmission Date: 20080115
  Serious: Yes (Other)
  Sender: FDA-Public Use
  Company Number: FR-NOVOPROD-266022

PATIENT
  Sex: Male
  Weight: 125 kg

DRUGS (3)
  1. INSULATARD FLEXPEN [Suspect]
     Indication: DIABETES MELLITUS
     Dosage: 30 IU, QD
  2. NOVONORM [Concomitant]
  3. METFORMINE [Concomitant]

REACTIONS (1)
  - RESPIRATORY DISORDER [None]
